FAERS Safety Report 24833697 (Version 4)
Quarter: 2025Q1

REPORT INFORMATION
  Report Type: Spontaneous
  Country: CH (occurrence: CH)
  Receive Date: 20250112
  Receipt Date: 20250218
  Transmission Date: 20250409
  Serious: Yes (Death, Life-Threatening, Hospitalization, Other)
  Sender: ABBVIE
  Company Number: CH-ABBVIE-6081595

PATIENT
  Age: 66 Year
  Sex: Male
  Weight: 78 kg

DRUGS (2)
  1. LEUPROLIDE ACETATE [Suspect]
     Active Substance: LEUPROLIDE ACETATE
     Indication: Prostate cancer
     Route: 040
     Dates: start: 20241224, end: 20241224
  2. BICALUTAMIDE [Suspect]
     Active Substance: BICALUTAMIDE
     Indication: Prostate cancer
     Route: 040
     Dates: start: 20241224, end: 20241224

REACTIONS (8)
  - Pulmonary embolism [Fatal]
  - Malaise [Not Recovered/Not Resolved]
  - Skin discolouration [Not Recovered/Not Resolved]
  - Loss of consciousness [Not Recovered/Not Resolved]
  - Incontinence [Not Recovered/Not Resolved]
  - Cardiac dysfunction [Not Recovered/Not Resolved]
  - Unresponsive to stimuli [Not Recovered/Not Resolved]
  - Syncope [Fatal]

NARRATIVE: CASE EVENT DATE: 20241224
